FAERS Safety Report 5961081-7 (Version None)
Quarter: 2008Q4

REPORT INFORMATION
  Report Type: 
  Country: None (occurrence: None)
  Receive Date: 20081119
  Receipt Date: 20081110
  Transmission Date: 20090506
  Serious: Yes (Death)
  Sender: FDA-Public Use
  Company Number: 2008-04241

PATIENT
  Age: 67 Year
  Sex: Male
  Weight: 63 kg

DRUGS (2)
  1. VELCADE [Suspect]
     Indication: MULTIPLE MYELOMA
     Dosage: 1.9 MG UNK INTRAVENOUS
     Route: 042
     Dates: start: 20080212
  2. DECADRON [Concomitant]

REACTIONS (1)
  - DISEASE PROGRESSION [None]
